FAERS Safety Report 8295785-0 (Version None)
Quarter: 2012Q2

REPORT INFORMATION
  Report Type: 
  Country: None (occurrence: None)
  Receive Date: 20120418
  Receipt Date: 20120413
  Transmission Date: 20120825
  Serious: No
  Sender: FDA-Public Use
  Company Number: US-BAYER-2012-037454

PATIENT
  Age: 72 Year
  Sex: Male

DRUGS (5)
  1. PREVACID [Concomitant]
  2. AVAPRO [Concomitant]
  3. ASPIRIN [Concomitant]
  4. XANAX [Concomitant]
  5. LEVITRA [Suspect]
     Indication: ERECTILE DYSFUNCTION
     Dosage: UNK
     Route: 048
     Dates: start: 20120325, end: 20120408

REACTIONS (1)
  - DRUG INEFFECTIVE [None]
